FAERS Safety Report 5378841-6 (Version None)
Quarter: 2007Q3

REPORT INFORMATION
  Report Type: 
  Country: None (occurrence: None)
  Receive Date: 20070705
  Receipt Date: 20070627
  Transmission Date: 20080115
  Serious: Yes (Hospitalization)
  Sender: FDA-Public Use
  Company Number: US-SANOFI-SYNTHELABO-A03200704323

PATIENT
  Sex: Male
  Weight: 103 kg

DRUGS (1)
  1. AMBIEN [Suspect]
     Indication: INSOMNIA
     Dosage: UNK
     Route: 048

REACTIONS (4)
  - ABASIA [None]
  - AGGRESSION [None]
  - EATING DISORDER [None]
  - SOMNAMBULISM [None]
